FAERS Safety Report 7362595-8 (Version None)
Quarter: 2011Q1

REPORT INFORMATION
  Report Type: 
  Country: None (occurrence: None)
  Receive Date: 20110320
  Receipt Date: 20100817
  Transmission Date: 20110831
  Serious: Yes (Life-Threatening, Hospitalization, Other)
  Sender: FDA-Public Use
  Company Number: US-BAYER-201013646NA

PATIENT
  Sex: Female
  Weight: 107 kg

DRUGS (2)
  1. DEXATRIM [Concomitant]
  2. YASMIN [Suspect]
     Indication: PRODUCT USED FOR UNKNOWN INDICATION
     Dosage: UNK UNK, QD
     Route: 048
     Dates: start: 20040101, end: 20080101

REACTIONS (6)
  - CHEST PAIN [None]
  - FATIGUE [None]
  - PULMONARY EMBOLISM [None]
  - DIZZINESS [None]
  - DEEP VEIN THROMBOSIS [None]
  - DYSPNOEA [None]
